FAERS Safety Report 6289564-3 (Version None)
Quarter: 2009Q3

REPORT INFORMATION
  Report Type: 
  Country: None (occurrence: None)
  Receive Date: 20090728
  Receipt Date: 20090728
  Transmission Date: 20100115
  Serious: Yes (Other)
  Sender: FDA-Public Use
  Company Number: None

PATIENT
  Age: 74 Year
  Sex: Male
  Weight: 87.0906 kg

DRUGS (3)
  1. DILANTIN [Suspect]
     Indication: CONVULSION
     Dosage: 2 CAPS EOD, 1 CAP MOD PO
     Route: 048
     Dates: start: 20000510, end: 20000510
  2. NEURONTIN [Suspect]
     Indication: CONVULSION
     Dosage: 1 BID PO
     Route: 048
     Dates: start: 20000510, end: 20090727
  3. KEPPRA [Suspect]

REACTIONS (2)
  - DRUG INTOLERANCE [None]
  - PRODUCT SUBSTITUTION ISSUE [None]
